FAERS Safety Report 12015145 (Version 1)
Quarter: 2016Q1

REPORT INFORMATION
  Report Type: Spontaneous
  Country: US (occurrence: US)
  Receive Date: 20160205
  Receipt Date: 20160205
  Transmission Date: 20160526
  Serious: No
  Sender: FDA-Public Use
  Company Number: US-AMGEN-USASP2015020830

PATIENT

DRUGS (5)
  1. XELOX [Concomitant]
     Active Substance: CAPECITABINE\OXALIPLATIN
     Indication: RECTAL CANCER STAGE III
     Dosage: UNK
     Dates: start: 20121003
  2. FOLINIC ACID [Concomitant]
     Active Substance: LEUCOVORIN
     Indication: RECTAL CANCER STAGE III
     Dosage: UNK
     Dates: start: 201201, end: 201206
  3. FLUOROURACIL. [Concomitant]
     Active Substance: FLUOROURACIL
     Indication: RECTAL CANCER STAGE III
     Dosage: UNK
     Dates: start: 201201, end: 201206
  4. NEULASTA [Suspect]
     Active Substance: PEGFILGRASTIM
     Indication: WHITE BLOOD CELL COUNT DECREASED
     Dosage: UNK
     Route: 065
  5. OXALIPLATIN. [Concomitant]
     Active Substance: OXALIPLATIN
     Indication: RECTAL CANCER STAGE III
     Dosage: UNK
     Dates: start: 201201, end: 201206

REACTIONS (2)
  - Fatigue [Unknown]
  - Gait disturbance [Unknown]
